FAERS Safety Report 16717933 (Version 1)
Quarter: 2019Q3

REPORT INFORMATION
  Report Type: Spontaneous
  Country: US (occurrence: US)
  Receive Date: 20190819
  Receipt Date: 20190819
  Transmission Date: 20191005
  Serious: No
  Sender: FDA-Public Use
  Company Number: US-LA JOLLA PHARMACEUTICAL COMPANY-0000275

PATIENT
  Sex: Female

DRUGS (3)
  1. VASOPRESSIN. [Concomitant]
     Active Substance: VASOPRESSIN
     Dosage: UNK
  2. NOREPINEPHRINE. [Concomitant]
     Active Substance: NOREPINEPHRINE
     Dosage: UNK
  3. GIAPREZA [Suspect]
     Active Substance: ANGIOTENSIN II
     Indication: DISTRIBUTIVE SHOCK
     Dosage: 20 NG/KG/MIN, UNK
     Route: 042

REACTIONS (1)
  - Oliguria [Recovered/Resolved]
